FAERS Safety Report 6221747-0 (Version None)
Quarter: 2009Q2

REPORT INFORMATION
  Report Type: 
  Country: None (occurrence: None)
  Receive Date: 20090608
  Receipt Date: 20090603
  Transmission Date: 20091009
  Serious: Yes (Hospitalization)
  Sender: FDA-Public Use
  Company Number: 2008SP023350

PATIENT
  Age: 69 Year
  Sex: Male
  Weight: 95.709 kg

DRUGS (22)
  1. TEMOZOLOMIDE [Suspect]
     Indication: OESOPHAGEAL CARCINOMA
     Dosage: 335 MG; QD; PO, 335 MG; QD; PO
     Route: 048
     Dates: start: 20080828, end: 20081112
  2. TEMOZOLOMIDE [Suspect]
     Indication: OESOPHAGEAL CARCINOMA
     Dosage: 335 MG; QD; PO, 335 MG; QD; PO
     Route: 048
     Dates: start: 20081212
  3. TEMOZOLOMIDE [Suspect]
  4. TEMOZOLOMIDE [Suspect]
  5. ALBUTEROL [Concomitant]
  6. MOMETASONE FUROATE [Concomitant]
  7. TRAZODONE HCL [Concomitant]
  8. ALLOPURINOL [Concomitant]
  9. VITAMIN D/CALCIUM [Concomitant]
  10. IPRATROOIUM [Concomitant]
  11. PRILOSEC [Concomitant]
  12. METHYLPHENIDATE HCL [Concomitant]
  13. ZOFRAN [Concomitant]
  14. FLUOXETINE HCL [Concomitant]
  15. FLOMAX [Concomitant]
  16. CODEINE [Concomitant]
  17. AZITHRYOMYCIN [Concomitant]
  18. SODIUM CHLORIDE [Concomitant]
  19. PREDNISONE [Concomitant]
  20. TAMULOSIN [Concomitant]
  21. FLUCONAZOLE [Concomitant]
  22. DOCUSATE [Concomitant]

REACTIONS (6)
  - ANAEMIA [None]
  - ASTHENIA [None]
  - DEHYDRATION [None]
  - MUSCULAR WEAKNESS [None]
  - PNEUMONIA [None]
  - TACHYCARDIA [None]
